FAERS Safety Report 24936345 (Version 1)
Quarter: 2025Q1

REPORT INFORMATION
  Report Type: Spontaneous
  Country: US (occurrence: US)
  Receive Date: 20250206
  Receipt Date: 20250206
  Transmission Date: 20250409
  Serious: No
  Sender: ELI LILLY AND COMPANY
  Company Number: US-ELI_LILLY_AND_COMPANY-US202502004016

PATIENT
  Age: 70 Year

DRUGS (2)
  1. TADALAFIL [Suspect]
     Active Substance: TADALAFIL
     Indication: Pulmonary hypertension
     Route: 065
  2. RALINEPAG [Concomitant]
     Active Substance: RALINEPAG
     Indication: Product used for unknown indication
     Route: 065

REACTIONS (3)
  - COVID-19 [Unknown]
  - Dyspnoea [Unknown]
  - Blood pressure increased [Unknown]

NARRATIVE: CASE EVENT DATE: 20240701
